FAERS Safety Report 13162810 (Version 2)
Quarter: 2017Q4

REPORT INFORMATION
  Report Type: Report from Study
  Country: DE (occurrence: DE)
  Receive Date: 20170130
  Receipt Date: 20171117
  Transmission Date: 20180320
  Serious: Yes (Death, Hospitalization)
  Sender: FDA-Public Use
  Company Number: PHHY2017DE010775

PATIENT
  Age: 87 Year
  Sex: Male

DRUGS (1)
  1. EXJADE [Suspect]
     Active Substance: DEFERASIROX
     Indication: IRON OVERLOAD
     Route: 065
     Dates: start: 20140224

REACTIONS (2)
  - Myelodysplastic syndrome [Unknown]
  - Death [Fatal]

NARRATIVE: CASE EVENT DATE: 20160930
